FAERS Safety Report 13396803 (Version 2)
Quarter: 2017Q2

REPORT INFORMATION
  Report Type: Spontaneous
  Country: JO (occurrence: JO)
  Receive Date: 20170403
  Receipt Date: 20170517
  Transmission Date: 20170830
  Serious: Yes (Other)
  Sender: FDA-Public Use
  Company Number: JO-BAYER-2017-054787

PATIENT
  Sex: Female

DRUGS (1)
  1. AVALOX [Suspect]
     Active Substance: MOXIFLOXACIN HYDROCHLORIDE
     Indication: SINUSITIS
     Dosage: UNK
     Dates: start: 20170303, end: 20170308

REACTIONS (7)
  - Gait disturbance [None]
  - Myalgia [None]
  - Musculoskeletal pain [None]
  - Stress [None]
  - Tendon rupture [None]
  - Tendon pain [None]
  - Muscle spasms [None]

NARRATIVE: CASE EVENT DATE: 20170304
